FAERS Safety Report 11719274 (Version 1)
Quarter: 2015Q4

REPORT INFORMATION
  Report Type: Spontaneous
  Country: DE (occurrence: DE)
  Receive Date: 20151110
  Receipt Date: 20151110
  Transmission Date: 20160304
  Serious: Yes (Hospitalization, Other)
  Sender: FDA-Public Use
  Company Number: DE-PFIZER INC-2015377015

PATIENT
  Sex: Female

DRUGS (3)
  1. VALORON N RETARD [Concomitant]
     Indication: PAIN
     Dosage: 100/8, 4X/DAY
  2. LYRICA [Suspect]
     Active Substance: PREGABALIN
     Indication: PAIN IN EXTREMITY
  3. LYRICA [Suspect]
     Active Substance: PREGABALIN
     Indication: SPINAL PAIN
     Dosage: 75, 2X/DAY

REACTIONS (6)
  - Myalgia [Recovering/Resolving]
  - Dysstasia [Unknown]
  - Intervertebral disc protrusion [Unknown]
  - Osteochondrosis [Unknown]
  - Pain in extremity [Recovering/Resolving]
  - Spinal osteoarthritis [Unknown]
